FAERS Safety Report 9999758 (Version 1)
Quarter: 2014Q1

REPORT INFORMATION
  Report Type: Spontaneous
  Country: DK (occurrence: DK)
  Receive Date: 20140312
  Receipt Date: 20140312
  Transmission Date: 20141002
  Serious: Yes (Disabling)
  Sender: FDA-Public Use
  Company Number: DK-EISAI INC-E7389-04833-SPO-DK

PATIENT
  Sex: Female

DRUGS (2)
  1. HALAVEN [Suspect]
     Indication: PRODUCT USED FOR UNKNOWN INDICATION
     Dosage: 1.23 MG/M2
     Route: 041
     Dates: end: 2014
  2. HALAVEN [Suspect]
     Dosage: REDUCED DOSE (UNSPECIFIED)
     Route: 041
     Dates: start: 2014

REACTIONS (1)
  - Palmar-plantar erythrodysaesthesia syndrome [Recovered/Resolved]
